FAERS Safety Report 5996641-0 (Version None)
Quarter: 2008Q4

REPORT INFORMATION
  Report Type: 
  Country: None (occurrence: None)
  Receive Date: 20081212
  Receipt Date: 20081021
  Transmission Date: 20090506
  Serious: No
  Sender: FDA-Public Use
  Company Number: US-ABBOTT-08P-163-0483145-00

PATIENT
  Sex: Female
  Weight: 85.352 kg

DRUGS (1)
  1. HUMIRA [Suspect]
     Indication: PSORIASIS
     Route: 058
     Dates: start: 20070221

REACTIONS (5)
  - ARTHRALGIA [None]
  - DRUG DEPENDENCE [None]
  - GAIT DISTURBANCE [None]
  - JOINT STIFFNESS [None]
  - MOBILITY DECREASED [None]
